FAERS Safety Report 5886203-8 (Version None)
Quarter: 2008Q3

REPORT INFORMATION
  Report Type: 
  Country: None (occurrence: None)
  Receive Date: 20080912
  Receipt Date: 20080828
  Transmission Date: 20090109
  Serious: Yes (Hospitalization, Other)
  Sender: FDA-Public Use
  Company Number: GB-DEXPHARM-20081001

PATIENT
  Age: 10 Week
  Sex: Male

DRUGS (3)
  1. OMEPRAZOLE [Suspect]
     Dosage: 0.7 MG/KG MILLIGRAM(S)/KILOGRAM, 1 IN 1 DAY
  2. RANITIDINE [Suspect]
  3. CISAPRIDE [Concomitant]

REACTIONS (7)
  - BLOOD BICARBONATE DECREASED [None]
  - BLOOD CHLORIDE INCREASED [None]
  - FEEDING DISORDER NEONATAL [None]
  - GASTROOESOPHAGEAL REFLUX DISEASE [None]
  - HIATUS HERNIA [None]
  - PYLORIC STENOSIS [None]
  - SCREAMING [None]
